FAERS Safety Report 15128589 (Version 1)
Quarter: 2018Q3

REPORT INFORMATION
  Report Type: Spontaneous
  Country: US (occurrence: US)
  Receive Date: 20180711
  Receipt Date: 20180711
  Transmission Date: 20181010
  Serious: No
  Sender: FDA-Public Use
  Company Number: US-BRISTOL-MYERS SQUIBB COMPANY-BMS-2018-064673

PATIENT
  Sex: Male

DRUGS (2)
  1. KENALOG?40 [Suspect]
     Active Substance: TRIAMCINOLONE ACETONIDE
     Indication: INFLAMMATION
     Dosage: UNAVAILABLE
     Route: 065
  2. KENALOG?40 [Suspect]
     Active Substance: TRIAMCINOLONE ACETONIDE
     Indication: HYPERSENSITIVITY
     Route: 065

REACTIONS (3)
  - Headache [Unknown]
  - Insomnia [Unknown]
  - Adverse drug reaction [Unknown]
